FAERS Safety Report 14563254 (Version 1)
Quarter: 2018Q1

REPORT INFORMATION
  Report Type: Spontaneous
  Country: ES (occurrence: ES)
  Receive Date: 20180222
  Receipt Date: 20180222
  Transmission Date: 20180509
  Serious: Yes (Life-Threatening)
  Sender: FDA-Public Use
  Company Number: ES-GLAXOSMITHKLINE-ES2018029072

PATIENT
  Age: 62 Year
  Sex: Male
  Weight: 76 kg

DRUGS (1)
  1. AVAMYS [Suspect]
     Active Substance: FLUTICASONE FUROATE
     Indication: INCREASED VISCOSITY OF UPPER RESPIRATORY SECRETION
     Dosage: 4 DF, QD
     Route: 055
     Dates: start: 20180126, end: 20180128

REACTIONS (3)
  - Face injury [Recovering/Resolving]
  - Hallucination [Recovered/Resolved]
  - Parasomnia [Recovered/Resolved]

NARRATIVE: CASE EVENT DATE: 20180126
